FAERS Safety Report 6432823-1 (Version None)
Quarter: 2009Q4

REPORT INFORMATION
  Report Type: 
  Country: None (occurrence: None)
  Receive Date: 20091109
  Receipt Date: 20091102
  Transmission Date: 20100525
  Serious: Yes (Other)
  Sender: FDA-Public Use
  Company Number: A0815851A

PATIENT
  Age: 73 Year
  Sex: Female
  Weight: 78.6 kg

DRUGS (1)
  1. TYKERB [Suspect]
     Dosage: 1250MG PER DAY
     Route: 048

REACTIONS (2)
  - DYSPNOEA [None]
  - EJECTION FRACTION DECREASED [None]
